FAERS Safety Report 7408306-9 (Version None)
Quarter: 2011Q2

REPORT INFORMATION
  Report Type: 
  Country: None (occurrence: None)
  Receive Date: 20110412
  Receipt Date: 20110321
  Transmission Date: 20111010
  Serious: Yes (Other)
  Sender: FDA-Public Use
  Company Number: GB-KINGPHARMUSA00001-K201100396

PATIENT
  Sex: Male

DRUGS (1)
  1. AVINZA [Suspect]
     Dosage: UNK

REACTIONS (1)
  - RENAL FAILURE ACUTE [None]
